FAERS Safety Report 8305368-1 (Version None)
Quarter: 2012Q2

REPORT INFORMATION
  Report Type: 
  Country: None (occurrence: None)
  Receive Date: 20120423
  Receipt Date: 20120410
  Transmission Date: 20120825
  Serious: Yes (Life-Threatening, Hospitalization)
  Sender: FDA-Public Use
  Company Number: US-JNJFOC-20120405751

PATIENT
  Age: 62 Year
  Sex: Female

DRUGS (5)
  1. ACETAMINOPHEN [Suspect]
     Route: 048
  2. ACETAMINOPHEN [Suspect]
     Indication: PRODUCT USED FOR UNKNOWN INDICATION
     Route: 048
  3. CLONIDINE [Suspect]
     Indication: HOT FLUSH
     Dosage: AS NEEDED
     Route: 048
  4. TAMOXIFEN CITRATE [Concomitant]
     Indication: PRODUCT USED FOR UNKNOWN INDICATION
     Route: 065
  5. FUROSEMIDE [Suspect]
     Indication: PRODUCT USED FOR UNKNOWN INDICATION
     Route: 048

REACTIONS (3)
  - SUICIDE ATTEMPT [None]
  - MULTIPLE DRUG OVERDOSE [None]
  - HYPOTHERMIA [None]
